FAERS Safety Report 5135317-9 (Version None)
Quarter: 2006Q4

REPORT INFORMATION
  Report Type: 
  Country: None (occurrence: None)
  Receive Date: 20061024
  Receipt Date: 20061024
  Transmission Date: 20070319
  Serious: Yes (Hospitalization)
  Sender: FDA-Public Use
  Company Number: None

PATIENT
  Age: 59 Year
  Sex: Male
  Weight: 83 kg

DRUGS (3)
  1. TRAZODONE HCL [Suspect]
     Dosage: 100MG QHS
     Dates: start: 20060201, end: 20060705
  2. BUPROPION HCL [Concomitant]
  3. TRAZODONE HCL [Concomitant]

REACTIONS (4)
  - BRADYCARDIA [None]
  - CONDUCTION DISORDER [None]
  - DIZZINESS [None]
  - HEART RATE IRREGULAR [None]
